FAERS Safety Report 13688653 (Version 1)
Quarter: 2017Q2

REPORT INFORMATION
  Report Type: Spontaneous
  Country: US (occurrence: US)
  Receive Date: 20170623
  Receipt Date: 20170623
  Transmission Date: 20170830
  Serious: Yes (Hospitalization, Disabling, Other)
  Sender: FDA-Public Use
  Company Number: None

PATIENT
  Age: 39 Year
  Sex: Female
  Weight: 53.1 kg

DRUGS (2)
  1. LORAZEPAM. [Suspect]
     Active Substance: LORAZEPAM
     Indication: INSOMNIA
     Dosage: ?          QUANTITY:1 TABLET(S);?
     Route: 048
  2. PROGESTERONE. [Concomitant]
     Active Substance: PROGESTERONE

REACTIONS (11)
  - Alopecia [None]
  - Multiple allergies [None]
  - Suicidal ideation [None]
  - Exposure during pregnancy [None]
  - Abortion spontaneous [None]
  - Agoraphobia [None]
  - Furuncle [None]
  - Cognitive disorder [None]
  - Weight decreased [None]
  - Visual impairment [None]
  - Amnesia [None]

NARRATIVE: CASE EVENT DATE: 20100601
